FAERS Safety Report 13583111 (Version 1)
Quarter: 2017Q2

REPORT INFORMATION
  Report Type: Spontaneous
  Country: HR (occurrence: HR)
  Receive Date: 20170526
  Receipt Date: 20170526
  Transmission Date: 20170830
  Serious: Yes (Other)
  Sender: FDA-Public Use
  Company Number: PHHY2017HR071772

PATIENT
  Age: 26 Year
  Sex: Female

DRUGS (3)
  1. TRILEPTAL [Suspect]
     Active Substance: OXCARBAZEPINE
     Indication: EPILEPSY
     Dosage: 1800 MG, UNK (6 TABLETS)
     Route: 048
     Dates: start: 201702, end: 201702
  2. NORMABEL [Suspect]
     Active Substance: DIAZEPAM
     Indication: PRODUCT USED FOR UNKNOWN INDICATION
     Dosage: 150 MG, UNK  (30 TABLETS)
     Route: 048
     Dates: start: 201702, end: 201702
  3. NIRVAL [Suspect]
     Active Substance: LEVETIRACETAM
     Indication: PRODUCT USED FOR UNKNOWN INDICATION
     Dosage: 8000 MG, UNK (16 TABLETS)
     Route: 048
     Dates: start: 201702, end: 201702

REACTIONS (4)
  - Somnolence [Unknown]
  - Altered state of consciousness [Unknown]
  - Suicide attempt [Unknown]
  - Intentional overdose [Unknown]

NARRATIVE: CASE EVENT DATE: 201702
